APPROVED DRUG PRODUCT: DEXMEDETOMIDINE HYDROCHLORIDE
Active Ingredient: DEXMEDETOMIDINE HYDROCHLORIDE
Strength: EQ 200MCG BASE/2ML (EQ 100MCG BASE/ML)
Dosage Form/Route: INJECTABLE;INJECTION
Application: A214794 | Product #001
Applicant: PIRAMAL CRITICAL CARE INC
Approved: Sep 3, 2021 | RLD: No | RS: No | Type: DISCN